FAERS Safety Report 15364424 (Version 1)
Quarter: 2018Q3

REPORT INFORMATION
  Report Type: Spontaneous
  Country: CN (occurrence: CN)
  Receive Date: 20180909
  Receipt Date: 20180909
  Transmission Date: 20181010
  Serious: Yes (Other)
  Sender: FDA-Public Use
  Company Number: CN-BAXTER-2018BAX022979

PATIENT
  Age: 12 Year
  Sex: Male
  Weight: 53 kg

DRUGS (3)
  1. RIBAVIRIN. [Suspect]
     Active Substance: RIBAVIRIN
     Indication: HEADACHE
     Dosage: IV GTT; 1/3 PART OF INFUSION TREATMENT WHICH INCLUDED RIBAVIRIN (0.4 G) + (4:1) GLUCOSE AND SODIUM C
     Route: 041
     Dates: start: 20180703, end: 20180703
  2. 20% MANNITOL INJECTION [Suspect]
     Active Substance: MANNITOL
     Indication: HEADACHE
     Dosage: IV GTT
     Route: 041
     Dates: start: 20180703, end: 20180703
  3. 5% GLUCOSE AND 0.9% SODIUM CHLORIDE INJECTION [Suspect]
     Active Substance: DEXTROSE\SODIUM CHLORIDE
     Indication: PRODUCT USED FOR UNKNOWN INDICATION
     Dosage: IV GTT; 1/3 PART OF INFUSION TREATMENT WHICH INCLUDED RIBAVIRIN (0.4 G) + (4:1) GLUCOSE AND SODIUM C
     Route: 041
     Dates: start: 20180703, end: 20180703

REACTIONS (2)
  - Rash pruritic [Recovered/Resolved]
  - Rash macular [Recovered/Resolved]

NARRATIVE: CASE EVENT DATE: 20180703
